FAERS Safety Report 25822444 (Version 1)
Quarter: 2025Q3

REPORT INFORMATION
  Report Type: Spontaneous
  Country: US (occurrence: US)
  Receive Date: 20250919
  Receipt Date: 20250919
  Transmission Date: 20251021
  Serious: No
  Sender: ABBVIE
  Company Number: US-ABBVIE-6459448

PATIENT
  Age: 56 Year
  Sex: Female

DRUGS (2)
  1. SKYRIZI [Suspect]
     Active Substance: RISANKIZUMAB-RZAA
     Indication: Psoriatic arthropathy
     Route: 058
     Dates: start: 20250905
  2. NAPROXEN [Suspect]
     Active Substance: NAPROXEN
     Indication: Headache
     Route: 065
     Dates: start: 202509

REACTIONS (5)
  - Dyspepsia [Not Recovered/Not Resolved]
  - Headache [Unknown]
  - Irritability [Unknown]
  - Drug ineffective [Unknown]
  - Disturbance in attention [Unknown]

NARRATIVE: CASE EVENT DATE: 20250901
